FAERS Safety Report 8467018-3 (Version None)
Quarter: 2012Q2

REPORT INFORMATION
  Report Type: 
  Country: None (occurrence: None)
  Receive Date: 20120619
  Receipt Date: 20111129
  Transmission Date: 20120825
  Serious: Yes (Other)
  Sender: FDA-Public Use
  Company Number: TPA2011A08094

PATIENT
  Age: 66 Year
  Sex: Male
  Weight: 109.7705 kg

DRUGS (1)
  1. ACTOS [Suspect]
     Indication: TYPE 2 DIABETES MELLITUS
     Dosage: 30 MG, 1 IN 1 D
     Dates: start: 20070813, end: 20110701

REACTIONS (1)
  - BLADDER CANCER [None]
